FAERS Safety Report 14280385 (Version 1)
Quarter: 2017Q4

REPORT INFORMATION
  Report Type: Spontaneous
  Country: US (occurrence: US)
  Receive Date: 20171212
  Receipt Date: 20171212
  Transmission Date: 20180321
  Serious: Yes (Other)
  Sender: FDA-Public Use
  Company Number: US-ALLERGAN-1769859US

PATIENT
  Age: 73 Year
  Sex: Female
  Weight: 58.96 kg

DRUGS (9)
  1. AMLODIPINE BESYLATE. [Concomitant]
     Active Substance: AMLODIPINE BESYLATE
     Dosage: 5 MG, QD
     Route: 048
  2. CLOPIDOGREL BISULFATE. [Concomitant]
     Active Substance: CLOPIDOGREL BISULFATE
     Dosage: 75 MG, QD
     Route: 065
  3. OMEGA-3 FATTY ACIDS [Concomitant]
     Active Substance: OMEGA-3 FATTY ACIDS
     Dosage: 870 MG, UNK
     Route: 065
  4. VITAMIN D [Concomitant]
     Active Substance: CHOLECALCIFEROL
     Dosage: 400 UNITS, UNK
     Route: 065
  5. OFLOXACIN, 0.3% [Suspect]
     Active Substance: OFLOXACIN
     Indication: CATARACT OPERATION
     Dosage: 4 GTT, QID
     Route: 047
     Dates: start: 20170828, end: 20170829
  6. ATORVASTATIN CALCIUM. [Concomitant]
     Active Substance: ATORVASTATIN CALCIUM
     Dosage: 40 MG, QD
     Route: 048
  7. NIZATIDINE. [Concomitant]
     Active Substance: NIZATIDINE
     Dosage: 300 MG, BID
     Route: 048
  8. KETOROLAC TROMETHAMINE 0.4% [Suspect]
     Active Substance: KETOROLAC TROMETHAMINE
     Indication: CATARACT OPERATION
     Dosage: UNK
     Route: 047
     Dates: start: 201708, end: 20170829
  9. SUCRALFATE KENT [Concomitant]
     Dosage: 1 G, PRN
     Route: 048

REACTIONS (10)
  - Malaise [Unknown]
  - Carpal tunnel syndrome [Unknown]
  - Headache [Recovered/Resolved]
  - Insomnia [Unknown]
  - Cranial nerve disorder [Unknown]
  - Haematuria [Unknown]
  - Abdominal pain upper [Unknown]
  - Hypertension [Unknown]
  - Cystitis [Unknown]
  - Hepatic steatosis [Unknown]

NARRATIVE: CASE EVENT DATE: 20170919
